FAERS Safety Report 5209850-5 (Version None)
Quarter: 2007Q1

REPORT INFORMATION
  Report Type: 
  Country: None (occurrence: None)
  Receive Date: 20061130
  Receipt Date: 20051011
  Transmission Date: 20070707
  Serious: Yes (Disabling, Other)
  Sender: FDA-Public Use
  Company Number: 2005126998

PATIENT
  Age: 37 Year
  Sex: Male
  Weight: 88.4514 kg

DRUGS (3)
  1. ZYVOX [Suspect]
     Indication: BACTERIAL INFECTION
     Dates: start: 20040801, end: 20050201
  2. ANTIBIOTICS (ANTIBIOTICS) [Suspect]
     Indication: BACTERIAL INFECTION
     Dates: start: 20050201
  3. BACTRIM [Suspect]
     Indication: BACTERIAL INFECTION

REACTIONS (3)
  - HYPOAESTHESIA [None]
  - NEUROPATHY PERIPHERAL [None]
  - PAIN IN EXTREMITY [None]
